FAERS Safety Report 25899880 (Version 1)
Quarter: 2025Q4

REPORT INFORMATION
  Report Type: Spontaneous
  Country: US (occurrence: US)
  Receive Date: 20251009
  Receipt Date: 20251009
  Transmission Date: 20260117
  Serious: No
  Sender: DR REDDYS
  Company Number: US-DRL-USA-USA/2025/09/014977

PATIENT

DRUGS (1)
  1. ZENATANE [Suspect]
     Active Substance: ISOTRETINOIN
     Indication: Sebaceous hyperplasia
     Route: 065

REACTIONS (1)
  - Product use in unapproved indication [Unknown]
